FAERS Safety Report 9214397 (Version 2)
Quarter: 2013Q2

REPORT INFORMATION
  Report Type: Spontaneous
  Country: JP (occurrence: JP)
  Receive Date: 20130405
  Receipt Date: 20130528
  Transmission Date: 20140414
  Serious: Yes (Hospitalization)
  Sender: FDA-Public Use
  Company Number: JP-PFIZER INC-2013107173

PATIENT
  Age: 66 Year
  Sex: Female

DRUGS (7)
  1. LIPITOR [Suspect]
     Indication: HYPERCHOLESTEROLAEMIA
     Dosage: UNK
     Route: 048
     Dates: start: 20130118, end: 201301
  2. MEXITIL [Suspect]
     Indication: VENTRICULAR TACHYCARDIA
     Dosage: UNK
     Route: 048
     Dates: start: 20130118, end: 20130308
  3. ARTIST [Concomitant]
     Indication: VENTRICULAR TACHYCARDIA
     Dosage: UNK
     Dates: start: 20130118
  4. BAYASPIRIN [Concomitant]
     Indication: VENTRICULAR TACHYCARDIA
     Dosage: UNK
     Dates: start: 20130118, end: 201301
  5. CEFTRIAXONE SODIUM [Concomitant]
     Indication: PNEUMONIA
     Dosage: UNK
     Route: 041
     Dates: start: 20121218
  6. GENINAX [Concomitant]
     Indication: PNEUMONIA
     Dosage: UNK
     Dates: start: 20121218
  7. DEXART [Concomitant]
     Dosage: UNK
     Dates: end: 201301

REACTIONS (2)
  - Toxic epidermal necrolysis [Recovering/Resolving]
  - Blood lactate dehydrogenase increased [Unknown]
